FAERS Safety Report 15574457 (Version 1)
Quarter: 2018Q4

REPORT INFORMATION
  Report Type: Spontaneous
  Country: SA (occurrence: SA)
  Receive Date: 20181101
  Receipt Date: 20181101
  Transmission Date: 20190205
  Serious: Yes (Death, Other)
  Sender: FDA-Public Use
  Company Number: SA-SUN PHARMACEUTICAL INDUSTRIES LTD-2018RR-189935

PATIENT
  Age: 29 Year
  Sex: Male

DRUGS (4)
  1. LEVETIRACETAM. [Suspect]
     Active Substance: LEVETIRACETAM
     Indication: MENINGIOMA BENIGN
     Dosage: 500 MG, BID
     Route: 065
  2. LEVETIRACETAM. [Suspect]
     Active Substance: LEVETIRACETAM
     Indication: SEIZURE
     Dosage: UNK
     Route: 065
  3. PHENYTOIN. [Suspect]
     Active Substance: PHENYTOIN
     Indication: SEIZURE
     Dosage: UNK
     Route: 065
  4. CARBOPLATIN. [Suspect]
     Active Substance: CARBOPLATIN
     Indication: MENINGIOMA MALIGNANT
     Dosage: 4 CYCLES
     Route: 065

REACTIONS (5)
  - Disease progression [Unknown]
  - Drug ineffective [Unknown]
  - Disease recurrence [Unknown]
  - Drug resistance [Unknown]
  - Disease progression [Fatal]

NARRATIVE: CASE EVENT DATE: 2012
